FAERS Safety Report 14256561 (Version 1)
Quarter: 2017Q4

REPORT INFORMATION
  Report Type: Spontaneous
  Country: US (occurrence: US)
  Receive Date: 20171206
  Receipt Date: 20171206
  Transmission Date: 20180321
  Serious: No
  Sender: FDA-Public Use
  Company Number: US-TEVA-2017-US-832589

PATIENT
  Sex: Female

DRUGS (2)
  1. AUSTEDO [Suspect]
     Active Substance: DEUTETRABENAZINE
     Indication: TONGUE MOVEMENT DISTURBANCE
     Dosage: 24 MILLIGRAM DAILY; 12MG BID
     Route: 065
  2. AUSTEDO [Suspect]
     Active Substance: DEUTETRABENAZINE
     Dosage: 6MG AT LUNCH AND 18MG WITH HER EVENING MEAL
     Route: 065

REACTIONS (4)
  - Drug ineffective [Unknown]
  - Restlessness [Unknown]
  - Feeling abnormal [Unknown]
  - Limb discomfort [Unknown]

NARRATIVE: CASE EVENT DATE: 2017
